FAERS Safety Report 20858885 (Version 1)
Quarter: 2022Q2

REPORT INFORMATION
  Report Type: Spontaneous
  Country: CA (occurrence: CA)
  Receive Date: 20220522
  Receipt Date: 20220522
  Transmission Date: 20220721
  Serious: Yes (Disabling)
  Sender: FDA-Public Use
  Company Number: None

PATIENT
  Age: 55 Year
  Sex: Female
  Weight: 117.91 kg

DRUGS (1)
  1. TELMISARTAN [Suspect]
     Active Substance: TELMISARTAN
     Indication: Hypertension
     Dosage: 80 MG, QD
     Route: 048

REACTIONS (6)
  - Emotional distress [Recovered/Resolved]
  - Sleep disorder [Recovered/Resolved]
  - Throat tightness [Recovered/Resolved]
  - Quality of life decreased [Recovered/Resolved]
  - Cough [Recovered/Resolved]
  - Product substitution issue [Recovered/Resolved]
